FAERS Safety Report 15964632 (Version 1)
Quarter: 2019Q1

REPORT INFORMATION
  Report Type: Spontaneous
  Country: JP (occurrence: JP)
  Receive Date: 20190215
  Receipt Date: 20190215
  Transmission Date: 20190418
  Serious: Yes (Hospitalization)
  Sender: FDA-Public Use
  Company Number: JP-TAKEDA-2018TJP028285

PATIENT
  Age: 49 Year
  Sex: Female
  Weight: 52.8 kg

DRUGS (2)
  1. VONOSAP PACK 800 [Suspect]
     Active Substance: AMOXICILLIN\CLARITHROMYCIN\VONOPRAZAN FUMURATE
     Indication: HELICOBACTER INFECTION
     Dosage: 0.5 DOSAGE FORM, BID
     Route: 048
     Dates: start: 20181007, end: 20181007
  2. NESINA [Suspect]
     Active Substance: ALOGLIPTIN BENZOATE
     Indication: DIABETES MELLITUS
     Dosage: 25 MILLIGRAM, QD
     Route: 048
     Dates: start: 20180106, end: 20181008

REACTIONS (9)
  - Urticaria [Recovering/Resolving]
  - Papule [Recovering/Resolving]
  - Chronic gastritis [Unknown]
  - Gastritis erosive [Unknown]
  - Helicobacter infection [Unknown]
  - Pyrexia [Unknown]
  - Drug eruption [Recovered/Resolved]
  - Dermatitis exfoliative generalised [Unknown]
  - Adverse drug reaction [None]

NARRATIVE: CASE EVENT DATE: 20181001
